FAERS Safety Report 9029833 (Version 2)
Quarter: 2013Q1

REPORT INFORMATION
  Report Type: Spontaneous
  Country: US (occurrence: US)
  Receive Date: 20130124
  Receipt Date: 20130305
  Transmission Date: 20140127
  Serious: Yes (Other)
  Sender: FDA-Public Use
  Company Number: CHPA2013US001343

PATIENT
  Age: 50 Year
  Sex: Male

DRUGS (2)
  1. BENEFIBER ORANGE POWDER [Suspect]
     Indication: NUTRITIONAL SUPPLEMENTATION
     Dosage: UNK, COUPLE TIMES PERWEEK
     Route: 048
     Dates: start: 2009
  2. BENEFIBER ORANGE POWDER [Suspect]
     Dosage: UNK, COUPLE OF TIMES PER WEEK
     Route: 048
     Dates: start: 2009

REACTIONS (1)
  - Rectal haemorrhage [Not Recovered/Not Resolved]
